FAERS Safety Report 7929750-7 (Version None)
Quarter: 2011Q4

REPORT INFORMATION
  Report Type: 
  Country: None (occurrence: None)
  Receive Date: 20111121
  Receipt Date: 20111115
  Transmission Date: 20120403
  Serious: No
  Sender: FDA-Public Use
  Company Number: PHEH2011US009540

PATIENT
  Sex: Male
  Weight: 75.737 kg

DRUGS (12)
  1. LIPITOR [Concomitant]
     Dosage: UNK UKN, UNK
  2. RAPAMUNE [Concomitant]
     Dosage: UNK UKN, UNK
  3. PREDNISONE TAB [Concomitant]
     Dosage: UNK UKN, UNK
  4. LASIX [Concomitant]
     Dosage: UNK UKN, UNK
  5. SODIUM POTASSIUM TARTRATE [Concomitant]
     Dosage: UNK UKN, UNK
  6. LISINOPRIL [Concomitant]
     Dosage: UNK UKN, UNK
  7. COREG [Concomitant]
     Dosage: UNK UKN, UNK
  8. TASIGNA [Suspect]
     Indication: NEOPLASM MALIGNANT
     Dosage: 300 MG, BID
     Route: 048
     Dates: start: 20110901
  9. MYCOPHENOLATE MOFETIL [Concomitant]
     Dosage: UNK UKN, UNK
  10. VALTREX [Concomitant]
     Dosage: UNK UKN, UNK
  11. CLONIDINE HYDROCHLORIDE [Concomitant]
     Dosage: UNK UKN, UNK
  12. GEMFIBROZIL [Concomitant]
     Dosage: UNK UKN, UNK

REACTIONS (1)
  - ABDOMINAL PAIN UPPER [None]
